FAERS Safety Report 22024103 (Version 1)
Quarter: 2023Q1

REPORT INFORMATION
  Report Type: Spontaneous
  Country: JO (occurrence: JO)
  Receive Date: 20230223
  Receipt Date: 20230223
  Transmission Date: 20230417
  Serious: Yes (Hospitalization, Other)
  Sender: FDA-Public Use
  Company Number: JO-ORGANON-O2302JOR000506

PATIENT
  Age: 56 Year
  Sex: Female

DRUGS (2)
  1. BETAMETHASONE DIPROPIONATE\BETAMETHASONE SODIUM PHOSPHATE [Suspect]
     Active Substance: BETAMETHASONE DIPROPIONATE\BETAMETHASONE SODIUM PHOSPHATE
     Dosage: UNK, ON THE RIGHT SIDE (FURTHER UNSPCIFIED)
     Dates: start: 20230129
  2. FEMARA [Concomitant]
     Active Substance: LETROZOLE
     Dosage: 1 TABLET/ DAY
     Route: 048

REACTIONS (3)
  - Pneumonia [Recovering/Resolving]
  - Oedema [Not Recovered/Not Resolved]
  - Erythema [Not Recovered/Not Resolved]

NARRATIVE: CASE EVENT DATE: 20230101
